FAERS Safety Report 9386760 (Version 2)
Quarter: 2013Q4

REPORT INFORMATION
  Report Type: Spontaneous
  Country: GB (occurrence: GB)
  Receive Date: 20130708
  Receipt Date: 20131204
  Transmission Date: 20140711
  Serious: Yes (Life-Threatening, Hospitalization, Disabling, Other)
  Sender: FDA-Public Use
  Company Number: PHFR2013GB003809

PATIENT
  Age: 50 Year
  Sex: Male

DRUGS (2)
  1. CARBAMAZEPINE [Suspect]
     Indication: TRIGEMINAL NEURALGIA
     Dosage: 100 MG, BID
     Route: 048
     Dates: start: 20130328
  2. CARBAMAZEPINE [Suspect]
     Dosage: 600 MG PER DAY
     Route: 048
     Dates: end: 20130419

REACTIONS (7)
  - Sepsis [Not Recovered/Not Resolved]
  - Influenza like illness [Unknown]
  - Back pain [Unknown]
  - Drug-induced liver injury [Unknown]
  - Dermatitis exfoliative [Not Recovered/Not Resolved]
  - Rash [Unknown]
  - Pyrexia [Unknown]
